FAERS Safety Report 12060338 (Version 2)
Quarter: 2019Q2

REPORT INFORMATION
  Report Type: Report from Study
  Country: US (occurrence: US)
  Receive Date: 20160210
  Receipt Date: 20190401
  Transmission Date: 20190711
  Serious: No
  Sender: FDA-Public Use
  Company Number: US-VANDA PHARMACEUTICALS, INC-2015TASUS001035

PATIENT
  Age: 74 Year
  Sex: Male

DRUGS (1)
  1. HETLIOZ [Suspect]
     Active Substance: TASIMELTEON
     Indication: CIRCADIAN RHYTHM SLEEP DISORDER
     Dosage: 20 MG, DAILY
     Route: 048
     Dates: start: 201511

REACTIONS (6)
  - Abnormal dreams [Recovered/Resolved]
  - Musculoskeletal stiffness [Recovered/Resolved]
  - Adverse drug reaction [Unknown]
  - Incorrect product administration duration [Unknown]
  - Dizziness [Recovered/Resolved]
  - Therapeutic response shortened [Unknown]
